FAERS Safety Report 25349713 (Version 2)
Quarter: 2025Q2

REPORT INFORMATION
  Report Type: Spontaneous
  Country: JP (occurrence: JP)
  Receive Date: 20250523
  Receipt Date: 20250625
  Transmission Date: 20250716
  Serious: Yes (Death)
  Sender: TAKEDA
  Company Number: JP-TAKEDA-2025TJP004800

PATIENT
  Age: 7 Decade

DRUGS (1)
  1. CUVITRU [Suspect]
     Active Substance: HUMAN IMMUNOGLOBULIN G
     Indication: Hypogammaglobulinaemia
     Dosage: UNK, Q2WEEKS

REACTIONS (1)
  - Road traffic accident [Fatal]
